FAERS Safety Report 21094393 (Version 1)
Quarter: 2022Q3

REPORT INFORMATION
  Report Type: Spontaneous
  Country: JP (occurrence: JP)
  Receive Date: 20220718
  Receipt Date: 20220718
  Transmission Date: 20221026
  Serious: Yes (Other)
  Sender: FDA-Public Use
  Company Number: JP-PFIZER INC-PV202200022514

PATIENT
  Age: 74 Year
  Sex: Female

DRUGS (1)
  1. EPLERENONE [Suspect]
     Active Substance: EPLERENONE
     Dosage: UNK
     Route: 048

REACTIONS (3)
  - Hallucination [Unknown]
  - Visual impairment [Unknown]
  - Feeling abnormal [Unknown]
